FAERS Safety Report 5267328-7 (Version None)
Quarter: 2007Q1

REPORT INFORMATION
  Report Type: 
  Country: None (occurrence: None)
  Receive Date: 20070316
  Receipt Date: 20070307
  Transmission Date: 20070707
  Serious: Yes (Death)
  Sender: FDA-Public Use
  Company Number: JP-ROCHE-486820

PATIENT
  Age: 83 Year
  Sex: Female

DRUGS (3)
  1. TAMIFLU [Suspect]
     Indication: INFLUENZA
     Route: 048
     Dates: start: 20070224, end: 20070225
  2. ANTIDIABETIC DRUG NOS [Concomitant]
  3. ACETAMINOPHEN [Concomitant]

REACTIONS (1)
  - CARDIO-RESPIRATORY ARREST [None]
